FAERS Safety Report 15572650 (Version 1)
Quarter: 2018Q4

REPORT INFORMATION
  Report Type: Spontaneous
  Country: NL (occurrence: NL)
  Receive Date: 20181031
  Receipt Date: 20181031
  Transmission Date: 20190205
  Serious: No
  Sender: FDA-Public Use
  Company Number: NL-BIOVERATIV-2018BV000742

PATIENT
  Age: 3 Year
  Weight: 16.5 kg

DRUGS (10)
  1. ELOCTA [Suspect]
     Active Substance: EFMOROCTOCOG ALFA
     Route: 065
  2. ELOCTA [Suspect]
     Active Substance: EFMOROCTOCOG ALFA
     Dosage: 50- 80 IU/DL UNTIL POST- OPERATIVE DAY 5
     Route: 065
  3. ELOCTA [Suspect]
     Active Substance: EFMOROCTOCOG ALFA
     Indication: FACTOR VIII DEFICIENCY
     Dosage: PROPHYLAXIS
     Route: 065
  4. ELOCTA [Suspect]
     Active Substance: EFMOROCTOCOG ALFA
     Dosage: SINGLE DAILY DOSE OF 40- 50 IU/KG ON POST- OPERATIVE DAY 6 AND 7
     Route: 065
  5. ELOCTA [Suspect]
     Active Substance: EFMOROCTOCOG ALFA
     Dosage: ONE HOUR BEFORE SURGERY
     Route: 065
  6. ELOCTA [Suspect]
     Active Substance: EFMOROCTOCOG ALFA
     Dosage: 80- 100 IU/DL DURING THE FIRST TWO POST- OPERATIVE DAYS
     Route: 065
  7. ELOCTA [Suspect]
     Active Substance: EFMOROCTOCOG ALFA
     Dosage: CONTINUOUS INFUSION
     Route: 050
  8. ELOCTA [Suspect]
     Active Substance: EFMOROCTOCOG ALFA
     Route: 065
  9. ELOCTA [Suspect]
     Active Substance: EFMOROCTOCOG ALFA
     Dosage: CONCENTRATE USED DURING THE PERIOD OF SURGERY IN 7 DAYS (AVERAGE OF 67 IU/KG/D).
     Route: 065
  10. ELOCTA [Suspect]
     Active Substance: EFMOROCTOCOG ALFA
     Dosage: INCREASED TO 6 IU/KG/H (0.6 ML/H) IN THE FIRST 6 HOURS AFTER SURGERY
     Route: 065

REACTIONS (1)
  - Off label use [Unknown]
